FAERS Safety Report 21042506 (Version 1)
Quarter: 2022Q3

REPORT INFORMATION
  Report Type: Spontaneous
  Country: US (occurrence: None)
  Receive Date: 20220705
  Receipt Date: 20220705
  Transmission Date: 20221027
  Serious: Yes (Hospitalization, Other)
  Sender: FDA-Public Use
  Company Number: US-MLMSERVICE-20220620-3625100-1

PATIENT
  Age: 32 Year
  Sex: Female

DRUGS (31)
  1. CYCLOPHOSPHAMIDE [Suspect]
     Active Substance: CYCLOPHOSPHAMIDE
     Indication: B precursor type acute leukaemia
     Dosage: UNKNOWN
     Route: 065
     Dates: start: 202107, end: 202107
  2. CYCLOPHOSPHAMIDE [Suspect]
     Active Substance: CYCLOPHOSPHAMIDE
     Dosage: CYCLE 3 PART A WAS INTERRUPTED
     Route: 065
     Dates: start: 202102, end: 202105
  3. CYCLOPHOSPHAMIDE [Suspect]
     Active Substance: CYCLOPHOSPHAMIDE
     Dosage: UNKNOWN
     Route: 065
     Dates: start: 201904, end: 2019
  4. DEXAMETHASONE [Suspect]
     Active Substance: DEXAMETHASONE
     Indication: B precursor type acute leukaemia
     Dosage: UNKNOWN
     Route: 065
     Dates: end: 202107
  5. DEXAMETHASONE [Suspect]
     Active Substance: DEXAMETHASONE
     Dosage: CYCLE 3 PART A WAS INTERRUPTED
     Route: 065
     Dates: start: 202102, end: 202105
  6. DEXAMETHASONE [Suspect]
     Active Substance: DEXAMETHASONE
     Dosage: UNKNOWN
     Route: 065
     Dates: start: 201904, end: 2019
  7. DOXORUBICIN [Suspect]
     Active Substance: DOXORUBICIN
     Indication: B precursor type acute leukaemia
     Dosage: CYCLE 3 PART A WAS INTERRUPTED
     Route: 065
     Dates: start: 202102, end: 202105
  8. DOXORUBICIN [Suspect]
     Active Substance: DOXORUBICIN
     Dosage: UNKNOWN
     Route: 065
     Dates: end: 202107
  9. DOXORUBICIN [Suspect]
     Active Substance: DOXORUBICIN
     Dosage: UNKNOWN
     Route: 065
     Dates: start: 201904, end: 2019
  10. ETOPOSIDE [Suspect]
     Active Substance: ETOPOSIDE
     Indication: B precursor type acute leukaemia
     Dosage: 1 CYCLE
     Route: 065
     Dates: start: 202101, end: 2021
  11. HYDROCORTISONE [Suspect]
     Active Substance: HYDROCORTISONE
     Indication: Nervous system disorder
     Dosage: UNKNOWN
     Route: 065
     Dates: start: 202007
  12. HYDROCORTISONE [Suspect]
     Active Substance: HYDROCORTISONE
     Dosage: UNKNOWN
     Route: 065
     Dates: start: 202001, end: 2020
  13. IFOSFAMIDE [Suspect]
     Active Substance: IFOSFAMIDE
     Indication: B precursor type acute leukaemia
     Dosage: UNKNOWN
     Route: 065
     Dates: start: 202101, end: 2021
  14. MERCAPTOPURINE [Suspect]
     Active Substance: MERCAPTOPURINE
     Indication: B precursor type acute leukaemia
     Dosage: UNKNOWN
     Route: 065
     Dates: start: 201908, end: 202001
  15. METHOTREXATE [Suspect]
     Active Substance: METHOTREXATE
     Indication: Nervous system disorder prophylaxis
     Dosage: UNKNOWN
     Route: 037
     Dates: start: 201904
  16. METHOTREXATE [Suspect]
     Active Substance: METHOTREXATE
     Indication: B precursor type acute leukaemia
     Dosage: UNKNOWN
     Route: 037
     Dates: start: 202001, end: 2020
  17. METHOTREXATE [Suspect]
     Active Substance: METHOTREXATE
     Indication: Nervous system disorder
     Dosage: UNKNOWN
     Route: 037
     Dates: start: 202007
  18. METHOTREXATE [Suspect]
     Active Substance: METHOTREXATE
     Indication: Nervous system disorder prophylaxis
     Dosage: HIGH-DOSE
     Route: 065
     Dates: start: 202001
  19. METHOTREXATE [Suspect]
     Active Substance: METHOTREXATE
     Indication: B precursor type acute leukaemia
     Dosage: UNKNOWN
     Route: 065
     Dates: start: 201908, end: 202001
  20. METHOTREXATE [Suspect]
     Active Substance: METHOTREXATE
     Indication: Nervous system disorder
  21. PREDNISONE [Suspect]
     Active Substance: PREDNISONE
     Indication: B precursor type acute leukaemia
     Dosage: UNKNOWN
     Route: 065
     Dates: start: 201908, end: 202001
  22. MITOXANTRONE [Suspect]
     Active Substance: MITOXANTRONE HYDROCHLORIDE
     Indication: B precursor type acute leukaemia
     Dosage: 1 CYCLE
     Route: 065
     Dates: start: 202101, end: 2021
  23. VINCRISTINE SULFATE [Suspect]
     Active Substance: VINCRISTINE SULFATE
     Indication: B precursor type acute leukaemia
     Dosage: UNKNOWN
     Route: 065
     Dates: start: 201904, end: 2019
  24. VINCRISTINE SULFATE [Suspect]
     Active Substance: VINCRISTINE SULFATE
     Dosage: UNKNOWN
     Route: 065
     Dates: start: 202107
  25. VINCRISTINE SULFATE [Suspect]
     Active Substance: VINCRISTINE SULFATE
     Dosage: CYCLE 3 PART A WAS INTERRUPTED
     Route: 065
     Dates: start: 202102, end: 202105
  26. CYTARABINE [Suspect]
     Active Substance: CYTARABINE
     Indication: Nervous system disorder
     Dosage: UNKNOWN
     Route: 065
     Dates: start: 202007
  27. CYTARABINE [Suspect]
     Active Substance: CYTARABINE
     Indication: Nervous system disorder prophylaxis
     Dosage: UNKNOWN
     Route: 065
     Dates: start: 202001, end: 2020
  28. CYTARABINE [Suspect]
     Active Substance: CYTARABINE
     Dosage: UNKNOWN
     Route: 065
     Dates: start: 201904
  29. DASATINIB [Suspect]
     Active Substance: DASATINIB
     Indication: Product used for unknown indication
     Dosage: UNKNOWN
     Route: 065
     Dates: start: 2019
  30. VINCRISTINE [Suspect]
     Active Substance: VINCRISTINE
     Indication: B precursor type acute leukaemia
     Dosage: UNKNOWN
     Route: 065
     Dates: start: 201908, end: 202001
  31. ISONIAZID [Concomitant]
     Active Substance: ISONIAZID
     Indication: Tuberculosis
     Dosage: UNKNOWN
     Route: 065

REACTIONS (6)
  - Strongyloidiasis [Recovering/Resolving]
  - Pericardial effusion [Recovering/Resolving]
  - Acute respiratory failure [Recovering/Resolving]
  - Appendicitis [Unknown]
  - Pulmonary oedema [Recovering/Resolving]
  - Staphylococcal infection [Recovering/Resolving]

NARRATIVE: CASE EVENT DATE: 20210501
